FAERS Safety Report 5056841-3 (Version None)
Quarter: 2006Q3

REPORT INFORMATION
  Report Type: 
  Country: None (occurrence: None)
  Receive Date: 20060721
  Receipt Date: 20060615
  Transmission Date: 20061208
  Serious: Yes (Other)
  Sender: FDA-Public Use
  Company Number: PHEH2006US07840

PATIENT
  Age: 41 Year
  Sex: Female
  Weight: 75.283 kg

DRUGS (2)
  1. DIOVAN HCT [Suspect]
     Indication: HYPERTENSION
     Dosage: 80MG VAL/12.5MG HCT, QD
     Route: 048
     Dates: start: 20060414, end: 20060501
  2. DIOVAN HCT [Suspect]
     Dosage: 40 MG
     Dates: end: 20060430

REACTIONS (13)
  - ASTHENIA [None]
  - BLINDNESS TRANSIENT [None]
  - DIZZINESS [None]
  - DRY MOUTH [None]
  - FALL [None]
  - FLUID INTAKE REDUCED [None]
  - INTERVERTEBRAL DISC PROTRUSION [None]
  - LIBIDO DECREASED [None]
  - LOSS OF CONSCIOUSNESS [None]
  - NERVE COMPRESSION [None]
  - SOMNOLENCE [None]
  - SYNCOPE [None]
  - VULVOVAGINAL DRYNESS [None]
